FAERS Safety Report 10771772 (Version 1)
Quarter: 2015Q1

REPORT INFORMATION
  Report Type: Spontaneous
  Country: NZ (occurrence: NZ)
  Receive Date: 20150206
  Receipt Date: 20150206
  Transmission Date: 20150721
  Serious: Yes (Other)
  Sender: FDA-Public Use
  Company Number: PHHY2015NZ014286

PATIENT
  Age: 30 Year
  Sex: Female

DRUGS (2)
  1. DICLOFENAC [Suspect]
     Active Substance: DICLOFENAC
     Indication: SPORTS INJURY
     Dosage: 75 MG, UNK
     Route: 030
  2. DICLOFENAC [Concomitant]
     Active Substance: DICLOFENAC
     Indication: SPORTS INJURY
     Dosage: 50 MG, UNK
     Route: 048

REACTIONS (2)
  - Skin necrosis [Recovered/Resolved]
  - Fat necrosis [Recovered/Resolved]
